FAERS Safety Report 8823153 (Version 1)
Quarter: 2012Q4

REPORT INFORMATION
  Report Type: 
  Country: JP (occurrence: JP)
  Receive Date: 20121003
  Receipt Date: 20121003
  Transmission Date: 20130627
  Serious: Yes (Other)
  Sender: FDA-Public Use
  Company Number: JP-PFIZER INC-2012244479

PATIENT
  Age: 76 Year

DRUGS (2)
  1. LYRICA [Suspect]
     Dosage: 75 mg, 1x/day
     Route: 048
     Dates: start: 20120911, end: 2012
  2. NEUROTROPIN [Concomitant]

REACTIONS (1)
  - Road traffic accident [Recovered/Resolved]
